FAERS Safety Report 22085363 (Version 1)
Quarter: 2023Q1

REPORT INFORMATION
  Report Type: Spontaneous
  Country: CZ (occurrence: CZ)
  Receive Date: 20230310
  Receipt Date: 20230310
  Transmission Date: 20230418
  Serious: Yes (Life-Threatening, Disabling, Other)
  Sender: FDA-Public Use
  Company Number: None

PATIENT
  Age: 60 Year
  Sex: Female
  Weight: 91 kg

DRUGS (7)
  1. BRAFTOVI [Suspect]
     Active Substance: ENCORAFENIB
     Indication: Colon cancer
     Dosage: 75 MG; FROM 3.10.2022 THE PATIENT HAD A DOSAGE OF 4-0-0, THEN FROM 1.11.2022 3-0-0
     Route: 048
     Dates: start: 20221003, end: 20230217
  2. NADROPARIN CALCIUM [Concomitant]
     Active Substance: NADROPARIN CALCIUM
     Dosage: 0.4 ML
     Route: 042
  3. MAGNESIUM LACTATE [Concomitant]
     Active Substance: MAGNESIUM LACTATE
     Dosage: 0.5 MG
     Route: 048
  4. MELOXICAM [Concomitant]
     Active Substance: MELOXICAM
     Dosage: 8 MG
     Route: 048
  5. ERBITUX [Concomitant]
     Active Substance: CETUXIMAB
     Indication: Colon cancer
     Dosage: 10 CYCLES IN 2 WEEK INTERVALS
     Route: 042
     Dates: start: 20220927, end: 20230217
  6. OMEPRAZOLE [Concomitant]
     Active Substance: OMEPRAZOLE
     Dosage: 20 MG
     Route: 048
  7. AMLODIPINE BESYLATE\PERINDOPRIL ARGININE [Concomitant]
     Active Substance: AMLODIPINE BESYLATE\PERINDOPRIL ARGININE
     Dosage: 5/5MG
     Route: 048

REACTIONS (4)
  - Second primary malignancy [Unknown]
  - Skin cancer [Unknown]
  - Uveitis [Unknown]
  - Iridocyclitis [Unknown]

NARRATIVE: CASE EVENT DATE: 20230125
